FAERS Safety Report 21350143 (Version 1)
Quarter: 2022Q3

REPORT INFORMATION
  Report Type: Spontaneous
  Country: US (occurrence: US)
  Receive Date: 20220919
  Receipt Date: 20220919
  Transmission Date: 20221027
  Serious: No
  Sender: FDA-Public Use
  Company Number: US-PFIZER INC-202201170118

PATIENT
  Age: 56 Year
  Sex: Female

DRUGS (10)
  1. PAXLOVID [Suspect]
     Active Substance: NIRMATRELVIR\RITONAVIR
     Indication: COVID-19 treatment
     Dosage: UNK
     Dates: start: 20220910, end: 20220914
  2. MONTELUKAST [Concomitant]
     Active Substance: MONTELUKAST SODIUM
     Dosage: 10 MG
     Dates: start: 20111124
  3. L LYSINE [LYSINE] [Concomitant]
     Dosage: 1000 MG
  4. BROMELAINS [Concomitant]
     Active Substance: BROMELAINS
     Dosage: 2400 GDU
  5. EXTRA STRENGTH TURMERIC CURCUMIN [Concomitant]
     Dosage: UNK
  6. MORINGA [MORINGA OLEIFERA] [Concomitant]
     Dosage: 600 MG
  7. PROBIOTICS NOS [Concomitant]
     Active Substance: PROBIOTICS NOS
     Dosage: EVERYDAY CARE
  8. MAGNESIUM SULFATE [Concomitant]
     Active Substance: MAGNESIUM SULFATE
     Dosage: UNK
  9. INHALERIN [Concomitant]
     Dosage: UNK
     Dates: start: 20220910, end: 20220910
  10. Women gummy vitamin [Concomitant]
     Dosage: UNK

REACTIONS (2)
  - COVID-19 [Not Recovered/Not Resolved]
  - Disease recurrence [Not Recovered/Not Resolved]

NARRATIVE: CASE EVENT DATE: 20220918
